FAERS Safety Report 12801862 (Version 1)
Quarter: 2016Q4

REPORT INFORMATION
  Report Type: Spontaneous
  Country: US (occurrence: US)
  Receive Date: 20161003
  Receipt Date: 20161003
  Transmission Date: 20170207
  Serious: Yes (Other)
  Sender: FDA-Public Use
  Company Number: US-MALLINCKRODT-T201604562

PATIENT
  Age: 68 Year
  Sex: Male

DRUGS (2)
  1. H.P. ACTHAR [Suspect]
     Active Substance: CORTICOTROPIN
     Indication: GLOMERULONEPHRITIS CHRONIC
     Dosage: 40 UNITS THREE TIMES WKLY X1WK
     Route: 058
     Dates: start: 20160822, end: 201608
  2. H.P. ACTHAR [Suspect]
     Active Substance: CORTICOTROPIN
     Dosage: 40 UNITS TWICE WKLY
     Route: 058
     Dates: start: 201608

REACTIONS (1)
  - Oedema [Recovered/Resolved]
